FAERS Safety Report 4580399-6 (Version None)
Quarter: 2005Q1

REPORT INFORMATION
  Report Type: 
  Country: None (occurrence: None)
  Receive Date: 20050214
  Receipt Date: 20040114
  Transmission Date: 20050727
  Serious: No
  Sender: FDA-Public Use
  Company Number: US-GLAXOSMITHKLINE-A0493277A

PATIENT
  Age: 38 Year
  Sex: Female

DRUGS (10)
  1. LAMICTAL [Suspect]
     Indication: BIPOLAR DISORDER
     Dosage: 25MG TWICE PER DAY
     Route: 048
     Dates: start: 20031101
  2. RISPERDAL [Suspect]
     Indication: BIPOLAR DISORDER
     Dosage: 1MG THREE TIMES PER DAY
     Dates: start: 20031101
  3. KLONOPIN [Concomitant]
  4. DEPAKOTE ER [Concomitant]
  5. REMERON [Concomitant]
  6. EFFEXOR XR [Concomitant]
  7. AMBIEN [Concomitant]
  8. RANITIDINE [Concomitant]
  9. ALLESSE [Concomitant]
  10. COLACE [Concomitant]

REACTIONS (2)
  - GALACTORRHOEA [None]
  - HYPERTROPHY BREAST [None]
